FAERS Safety Report 15846991 (Version 1)
Quarter: 2019Q1

REPORT INFORMATION
  Report Type: Spontaneous
  Country: DE (occurrence: DE)
  Receive Date: 20190121
  Receipt Date: 20190121
  Transmission Date: 20190417
  Serious: Yes (Hospitalization, Other)
  Sender: FDA-Public Use
  Company Number: DE-SUN PHARMACEUTICAL INDUSTRIES LTD-2019RR-196314

PATIENT
  Age: 65 Year
  Sex: Female

DRUGS (6)
  1. RAMIPRIL 1A PHARMA [Interacting]
     Active Substance: RAMIPRIL
     Indication: PRODUCT USED FOR UNKNOWN INDICATION
     Dosage: UNK ()
     Route: 065
  2. ATORVASTATIN BASICS [Suspect]
     Active Substance: ATORVASTATIN
     Indication: PRODUCT USED FOR UNKNOWN INDICATION
     Dosage: UNK ()
     Route: 065
  3. BRILIQUE [Interacting]
     Active Substance: TICAGRELOR
     Indication: PRODUCT USED FOR UNKNOWN INDICATION
     Dosage: 90 MG, BID (IN MORNING AND EVENING)
     Route: 065
  4. ASPIRIN. [Interacting]
     Active Substance: ASPIRIN
     Indication: PRODUCT USED FOR UNKNOWN INDICATION
     Dosage: 100 MG, QD (IN MORNING)
     Route: 065
  5. VALSARTAN DURA [Interacting]
     Active Substance: VALSARTAN
     Indication: PRODUCT USED FOR UNKNOWN INDICATION
     Dosage: 40 MG, QD (IN MORNING)
     Route: 065
     Dates: start: 201803
  6. BISOPROLOL DEXCEL [Interacting]
     Active Substance: BISOPROLOL FUMARATE
     Indication: PRODUCT USED FOR UNKNOWN INDICATION
     Dosage: 2.5 MG, QD (IN MORNING)
     Route: 065

REACTIONS (12)
  - Abdominal pain upper [Unknown]
  - Renal cell carcinoma [Unknown]
  - Overdose [Unknown]
  - Cough [Unknown]
  - Headache [Unknown]
  - Fatigue [Unknown]
  - Mucosal dryness [Unknown]
  - Myocardial infarction [Unknown]
  - Drug interaction [Unknown]
  - Nausea [Unknown]
  - Contusion [Unknown]
  - Gingival ulceration [Unknown]

NARRATIVE: CASE EVENT DATE: 2015
